FAERS Safety Report 7997979-8 (Version None)
Quarter: 2011Q4

REPORT INFORMATION
  Report Type: 
  Country: None (occurrence: None)
  Receive Date: 20111221
  Receipt Date: 20111214
  Transmission Date: 20120403
  Serious: Yes (Hospitalization, Other)
  Sender: FDA-Public Use
  Company Number: BR-BAXTER-2011BH039503

PATIENT
  Age: 17 Month
  Sex: Female
  Weight: 12 kg

DRUGS (12)
  1. ONDANSETRON [Concomitant]
     Indication: PROPHYLAXIS OF NAUSEA AND VOMITING
     Route: 042
     Dates: start: 20110829, end: 20110902
  2. DEXAMETHASONE [Concomitant]
     Indication: PREMEDICATION
     Route: 042
     Dates: start: 20110829, end: 20110902
  3. SULFAMETHOXAZOLE AND TRIMETHOPRIM [Concomitant]
     Indication: ANTIBIOTIC PROPHYLAXIS
     Route: 048
     Dates: start: 20110822
  4. MESNA [Concomitant]
     Indication: PROPHYLAXIS
     Route: 042
     Dates: start: 20110829, end: 20110902
  5. FILGRASTIM [Concomitant]
     Indication: NEUTROPENIA
     Route: 065
     Dates: start: 20110822, end: 20110902
  6. ONDANSETRON [Concomitant]
     Route: 048
     Dates: start: 20110822, end: 20110902
  7. CYCLOPHOSPHAMIDE [Suspect]
     Indication: RETINOBLASTOMA BILATERAL
     Route: 042
     Dates: start: 20110829, end: 20110902
  8. TOPOTECAN [Concomitant]
     Indication: RETINOBLASTOMA
     Route: 042
     Dates: start: 20110829, end: 20110902
  9. POTASSIUM CHLORIDE [Concomitant]
     Indication: PRODUCT USED FOR UNKNOWN INDICATION
     Route: 042
     Dates: start: 20110829, end: 20110902
  10. SODIUM CHLORIDE [Concomitant]
     Indication: PRODUCT USED FOR UNKNOWN INDICATION
     Route: 042
     Dates: start: 20110829, end: 20110902
  11. ONDANSETRON [Concomitant]
     Indication: ANTIEMETIC SUPPORTIVE CARE
     Route: 048
     Dates: start: 20110803, end: 20110813
  12. DIPYRONE INJ [Concomitant]
     Indication: PROPHYLAXIS
     Route: 048
     Dates: start: 20110822, end: 20110907

REACTIONS (5)
  - FEBRILE NEUTROPENIA [None]
  - PYREXIA [None]
  - COUGH [None]
  - CRYING [None]
  - AGITATION [None]
